FAERS Safety Report 12472382 (Version 1)
Quarter: 2016Q2

REPORT INFORMATION
  Report Type: Report from Study
  Country: IN (occurrence: PK)
  Receive Date: 20160616
  Receipt Date: 20160616
  Transmission Date: 20160815
  Serious: Yes (Other)
  Sender: FDA-Public Use
  Company Number: PK-BAUSCH-BL-2016-013917

PATIENT
  Age: 57 Year
  Sex: Female

DRUGS (1)
  1. RIBAVIRIN. [Suspect]
     Active Substance: RIBAVIRIN
     Indication: HEPATITIS C
     Route: 065
     Dates: start: 201103

REACTIONS (1)
  - Hypothyroidism [Unknown]

NARRATIVE: CASE EVENT DATE: 2011
